FAERS Safety Report 6425005-0 (Version None)
Quarter: 2009Q4

REPORT INFORMATION
  Report Type: 
  Country: None (occurrence: None)
  Receive Date: 20091102
  Receipt Date: 20091102
  Transmission Date: 20100525
  Serious: Yes (Hospitalization)
  Sender: FDA-Public Use
  Company Number: None

PATIENT
  Age: 53 Year
  Sex: Female

DRUGS (1)
  1. AMOXICILLIN AND CLAVULANATE POTASSIUM [Suspect]
     Indication: EAR INFECTION
     Dosage: 500 MG BID PO
     Route: 048
     Dates: start: 20080926, end: 20081007

REACTIONS (4)
  - CLOSTRIDIUM DIFFICILE COLITIS [None]
  - CULTURE STOOL POSITIVE [None]
  - GASTRIC HAEMORRHAGE [None]
  - KLEBSIELLA INFECTION [None]
